FAERS Safety Report 10669731 (Version 2)
Quarter: 2014Q4

REPORT INFORMATION
  Report Type: Spontaneous
  Country: CA (occurrence: CA)
  Receive Date: 20141222
  Receipt Date: 20141222
  Transmission Date: 20150529
  Serious: Yes (Death, Other)
  Sender: FDA-Public Use
  Company Number: CA-GLAXOSMITHKLINE-A1057735A

PATIENT
  Age: 77 Year
  Sex: Female

DRUGS (1)
  1. TAFINLAR [Suspect]
     Active Substance: DABRAFENIB MESYLATE
     Indication: METASTATIC MALIGNANT MELANOMA
     Dosage: 300 MG, U
     Route: 065

REACTIONS (5)
  - Local swelling [Unknown]
  - Wound haemorrhage [Unknown]
  - Asthenia [Unknown]
  - Death [Fatal]
  - Chills [Unknown]

NARRATIVE: CASE EVENT DATE: 201401
